FAERS Safety Report 9863867 (Version 2)
Quarter: 2014Q1

REPORT INFORMATION
  Report Type: Spontaneous
  Country: IT (occurrence: IT)
  Receive Date: 20140203
  Receipt Date: 20140331
  Transmission Date: 20141002
  Serious: Yes (Hospitalization)
  Sender: FDA-Public Use
  Company Number: IT-BRISTOL-MYERS SQUIBB COMPANY-20094058

PATIENT
  Age: 77 Year
  Sex: Female

DRUGS (4)
  1. ORENCIA FOR INJ 250 MG/VIAL [Suspect]
     Indication: RHEUMATOID ARTHRITIS
     Dates: start: 20130801, end: 20140102
  2. METHOTREXATE [Concomitant]
  3. DELTACORTENE [Concomitant]
     Dosage: TABS.
  4. PLAQUENIL [Concomitant]
     Dosage: DOSAGE/2/UNIT.

REACTIONS (1)
  - Breast mass [Unknown]
